FAERS Safety Report 10577362 (Version 1)
Quarter: 2014Q4

REPORT INFORMATION
  Report Type: Report from Study
  Country: US (occurrence: US)
  Receive Date: 20141111
  Receipt Date: 20141111
  Transmission Date: 20150529
  Serious: Yes (Hospitalization, Other)
  Sender: FDA-Public Use
  Company Number: US-ASTRAZENECA-2014SE84771

PATIENT
  Age: 61 Year
  Sex: Male
  Weight: 103.4 kg

DRUGS (18)
  1. DILANTIN [Concomitant]
     Active Substance: PHENYTOIN
     Indication: SEIZURE
     Dates: end: 20140915
  2. BRILINTA [Suspect]
     Active Substance: TICAGRELOR
     Indication: ANTICOAGULANT THERAPY
     Route: 048
     Dates: start: 20140829
  3. FISH OIL [Concomitant]
     Active Substance: FISH OIL
     Dates: start: 20141103
  4. MILK THISTLE [Concomitant]
     Active Substance: MILK THISTLE
     Indication: LIVER DISORDER
     Dates: start: 2009
  5. POTASSIUM [Concomitant]
     Active Substance: POTASSIUM
     Dates: start: 2009
  6. AMLODIPINE BENAZEPRL [Concomitant]
     Indication: BLOOD PRESSURE ABNORMAL
     Dates: start: 201305
  7. ATORVASTATIN [Concomitant]
     Active Substance: ATORVASTATIN
     Indication: BLOOD CHOLESTEROL ABNORMAL
     Dates: start: 20140829
  8. NIACIN. [Concomitant]
     Active Substance: NIACIN
  9. BABY ASPIRIN [Concomitant]
     Active Substance: ASPIRIN
     Dates: start: 20140829
  10. CINNAMON. [Concomitant]
     Active Substance: CINNAMON
     Indication: BLOOD GLUCOSE ABNORMAL
     Dates: start: 2012
  11. COENZYME Q10 [Concomitant]
     Active Substance: UBIDECARENONE
     Dates: start: 2004
  12. ATENOLOL. [Suspect]
     Active Substance: ATENOLOL
     Indication: BLOOD PRESSURE ABNORMAL
     Route: 048
  13. BRILINTA [Suspect]
     Active Substance: TICAGRELOR
     Indication: ACUTE CORONARY SYNDROME
     Route: 048
     Dates: start: 20140829
  14. BETA CAROTENE [Concomitant]
     Dates: start: 2009
  15. DILANTIN [Concomitant]
     Active Substance: PHENYTOIN
     Indication: SEIZURE
  16. CALCIUM [Concomitant]
     Active Substance: CALCIUM
     Dates: start: 201409
  17. B6 [Concomitant]
     Active Substance: PYRIDOXINE HYDROCHLORIDE
     Indication: READING DISORDER
     Dates: start: 2004
  18. VITAMIN D [Concomitant]
     Active Substance: CHOLECALCIFEROL
     Dates: start: 2012

REACTIONS (6)
  - Malaise [Not Recovered/Not Resolved]
  - Feeling abnormal [Not Recovered/Not Resolved]
  - Influenza like illness [Unknown]
  - Dizziness [Not Recovered/Not Resolved]
  - Nausea [Unknown]
  - Seizure [Not Recovered/Not Resolved]

NARRATIVE: CASE EVENT DATE: 2014
